FAERS Safety Report 13058910 (Version 1)
Quarter: 2016Q4

REPORT INFORMATION
  Report Type: Spontaneous
  Country: US (occurrence: US)
  Receive Date: 20161223
  Receipt Date: 20161223
  Transmission Date: 20170207
  Serious: Yes (Death, Hospitalization)
  Sender: FDA-Public Use
  Company Number: US-SA-2016SA233029

PATIENT
  Age: 78 Year
  Sex: Male
  Weight: 80.45 kg

DRUGS (9)
  1. CRESTOR [Concomitant]
     Active Substance: ROSUVASTATIN CALCIUM
     Dates: start: 20160104
  2. CARVEDILOL. [Concomitant]
     Active Substance: CARVEDILOL
     Dates: start: 20151229
  3. PLAVIX [Suspect]
     Active Substance: CLOPIDOGREL BISULFATE
     Route: 065
  4. ASPIRIN. [Suspect]
     Active Substance: ASPIRIN
     Route: 065
  5. BLINDED THERAPY [Concomitant]
     Active Substance: INVESTIGATIONAL PRODUCT
     Indication: PROPHYLAXIS
     Route: 058
     Dates: start: 20130826
  6. CLOPIDOGREL [Concomitant]
     Active Substance: CLOPIDOGREL BISULFATE
     Dates: start: 20151230
  7. FISH OIL [Concomitant]
     Active Substance: FISH OIL
     Dates: start: 20160104
  8. LOSARTAN. [Concomitant]
     Active Substance: LOSARTAN
     Dates: start: 201505
  9. ISOSORBIDE DINITRATE. [Concomitant]
     Active Substance: ISOSORBIDE DINITRATE
     Dates: start: 20151230

REACTIONS (4)
  - Gastrointestinal haemorrhage [Recovered/Resolved]
  - Graft infection [Fatal]
  - Acute kidney injury [Unknown]
  - Arterioenteric fistula [Fatal]

NARRATIVE: CASE EVENT DATE: 201610
